FAERS Safety Report 8400908-6 (Version None)
Quarter: 2012Q2

REPORT INFORMATION
  Report Type: 
  Country: None (occurrence: None)
  Receive Date: 20120601
  Receipt Date: 20120518
  Transmission Date: 20120825
  Serious: Yes (Death, Hospitalization, Other)
  Sender: FDA-Public Use
  Company Number: TR-AMGEN-TURSP2012002492

PATIENT
  Age: 74 Year
  Sex: Female

DRUGS (1)
  1. ENBREL [Suspect]
     Indication: RHEUMATOID ARTHRITIS
     Dosage: 50 MG, WEEKLY
     Route: 058
     Dates: start: 20110711, end: 20111101

REACTIONS (10)
  - FLATULENCE [None]
  - ASTHENIA [None]
  - DEATH [None]
  - DYSPHAGIA [None]
  - OVARIAN CANCER [None]
  - DYSPNOEA [None]
  - PAIN [None]
  - CELL MARKER INCREASED [None]
  - OLIGURIA [None]
  - PULMONARY OEDEMA [None]
